FAERS Safety Report 26169313 (Version 1)
Quarter: 2025Q4

REPORT INFORMATION
  Report Type: Spontaneous
  Country: US (occurrence: None)
  Receive Date: 20251217
  Receipt Date: 20251217
  Transmission Date: 20260118
  Serious: Yes (Hospitalization)
  Sender: FDA-CTU
  Company Number: None

PATIENT
  Sex: Female

DRUGS (10)
  1. LENALIDOMIDE [Suspect]
     Active Substance: LENALIDOMIDE
     Indication: Plasma cell myeloma
     Dosage: TAKE 1 CAPSULE BY MOUTH DAILY ON DAYS 1-21 OF EACH 28 DAY CYCLE (3 WEEKS ON/1 WEEK OFF)
     Route: 048
     Dates: start: 20250927
  2. ACYCLOVIR [Concomitant]
     Active Substance: ACYCLOVIR
  3. CLOTRIM/BETA CRE DIPROP [Concomitant]
  4. CLOTRIMAZOLE CRE 1% [Concomitant]
  5. CRANBERRY [Concomitant]
     Active Substance: CRANBERRY
  6. DARZALEX  SOL [Concomitant]
  7. DEXAMETHASONE [Concomitant]
     Active Substance: DEXAMETHASONE
  8. ELIOUIS [Concomitant]
  9. FARXIGA [Concomitant]
     Active Substance: DAPAGLIFLOZIN PROPANEDIOL
  10. FUROSEMIDE [Concomitant]
     Active Substance: FUROSEMIDE

REACTIONS (3)
  - Localised infection [None]
  - Therapy interrupted [None]
  - Therapy change [None]
